FAERS Safety Report 4367495-3 (Version None)
Quarter: 2004Q2

REPORT INFORMATION
  Report Type: 
  Country: None (occurrence: None)
  Receive Date: 20040601
  Receipt Date: 20040525
  Transmission Date: 20050107
  Serious: Yes (Other)
  Sender: FDA-Public Use
  Company Number: US-BRISTOL-MYERS SQUIBB COMPANY-12595971

PATIENT
  Age: 15 Year
  Sex: Female

DRUGS (1)
  1. GLUCOPHAGE [Suspect]
     Indication: POLYCYSTIC OVARIES
     Route: 048
     Dates: start: 20040101

REACTIONS (1)
  - BLOOD PRESSURE INCREASED [None]
